FAERS Safety Report 20726347 (Version 6)
Quarter: 2023Q4

REPORT INFORMATION
  Report Type: Spontaneous
  Country: US (occurrence: US)
  Receive Date: 20220419
  Receipt Date: 20231003
  Transmission Date: 20240110
  Serious: No
  Sender: FDA-Public Use
  Company Number: US-PFIZER INC-202101352610

PATIENT
  Age: 84 Year
  Sex: Female

DRUGS (2)
  1. IBRANCE [Suspect]
     Active Substance: PALBOCICLIB
     Indication: Breast cancer female
     Dosage: 21 DAY ON 7 DAY OFF
  2. IBRANCE [Suspect]
     Active Substance: PALBOCICLIB
     Dosage: 14 DAY ON 14 DAY OFF

REACTIONS (12)
  - Neoplasm progression [Unknown]
  - Product dose omission issue [Unknown]
  - Off label use [Unknown]
  - Alopecia [Unknown]
  - Blood test abnormal [Unknown]
  - Musculoskeletal discomfort [Unknown]
  - Stress [Unknown]
  - Hair texture abnormal [Unknown]
  - Sleep disorder [Unknown]
  - Fatigue [Unknown]
  - Haemoglobin decreased [Unknown]
  - Overweight [Unknown]

NARRATIVE: CASE EVENT DATE: 20230801
